FAERS Safety Report 8624565-9 (Version None)
Quarter: 2012Q3

REPORT INFORMATION
  Report Type: 
  Country: None (occurrence: None)
  Receive Date: 20120827
  Receipt Date: 20120822
  Transmission Date: 20120928
  Serious: Yes (Other)
  Sender: FDA-Public Use
  Company Number: CA-JNJFOC-20120810484

PATIENT
  Sex: Male
  Weight: 67 kg

DRUGS (2)
  1. REMICADE [Suspect]
     Indication: CROHN'S DISEASE
     Route: 042
     Dates: start: 20110222
  2. TYLENOL W/ CODEINE NO. 3 [Concomitant]
     Route: 065

REACTIONS (2)
  - NAUSEA [None]
  - MUSCLE SPASMS [None]
